FAERS Safety Report 24609728 (Version 1)
Quarter: 2024Q4

REPORT INFORMATION
  Report Type: Spontaneous
  Country: US (occurrence: US)
  Receive Date: 20241112
  Receipt Date: 20241112
  Transmission Date: 20250114
  Serious: No
  Sender: SANOFI AVENTIS
  Company Number: US-SA-2024SA325994

PATIENT
  Sex: Female
  Weight: 34 kg

DRUGS (3)
  1. DUPIXENT [Suspect]
     Active Substance: DUPILUMAB
     Indication: Eosinophilic oesophagitis
     Dosage: 300 MG, QW
     Route: 058
  2. DUPIXENT [Suspect]
     Active Substance: DUPILUMAB
     Indication: Hypopituitarism
  3. DUPIXENT [Suspect]
     Active Substance: DUPILUMAB
     Indication: Juvenile idiopathic arthritis

REACTIONS (1)
  - Off label use [Unknown]
